APPROVED DRUG PRODUCT: HYDROMORPHONE HYDROCHLORIDE
Active Ingredient: HYDROMORPHONE HYDROCHLORIDE
Strength: 5MG/5ML
Dosage Form/Route: SOLUTION;ORAL
Application: A210176 | Product #001 | TE Code: AA
Applicant: ASCENT PHARMACEUTICALS INC
Approved: Oct 27, 2017 | RLD: No | RS: No | Type: RX